FAERS Safety Report 6930946-1 (Version None)
Quarter: 2010Q3

REPORT INFORMATION
  Report Type: 
  Country: None (occurrence: None)
  Receive Date: 20100818
  Receipt Date: 20100810
  Transmission Date: 20110219
  Serious: Yes (Hospitalization)
  Sender: FDA-Public Use
  Company Number: US-WYE-H15530610

PATIENT
  Sex: Male
  Weight: 65.83 kg

DRUGS (3)
  1. PRISTIQ [Suspect]
     Indication: DEPRESSION
     Route: 048
     Dates: start: 20100510, end: 20100523
  2. PENTAZOCINE [Concomitant]
     Dosage: AS NEEDED FOR PAIN
     Route: 065
  3. LORAZEPAM [Concomitant]
     Indication: ANXIETY
     Dosage: UNKNOWN DOSE AS NEEDED

REACTIONS (7)
  - AGITATION [None]
  - ANXIETY [None]
  - CHEST PAIN [None]
  - CONDITION AGGRAVATED [None]
  - CONSTIPATION [None]
  - DRUG INEFFECTIVE [None]
  - PANCREATITIS [None]
